FAERS Safety Report 13823649 (Version 2)
Quarter: 2020Q2

REPORT INFORMATION
  Report Type: Spontaneous
  Country: US (occurrence: US)
  Receive Date: 20170802
  Receipt Date: 20200428
  Transmission Date: 20200713
  Serious: Yes (Other)
  Sender: FDA-Public Use
  Company Number: US-BRISTOL-MYERS SQUIBB COMPANY-BMS-2017-067418

PATIENT
  Age: 30 Year
  Sex: Female

DRUGS (1)
  1. ELIQUIS [Suspect]
     Active Substance: APIXABAN
     Indication: ATRIAL THROMBOSIS
     Dosage: 5 MG, BID
     Route: 065

REACTIONS (3)
  - Thrombectomy [Unknown]
  - Intentional product use issue [Unknown]
  - Atrial thrombosis [Unknown]
